FAERS Safety Report 6601209-9 (Version None)
Quarter: 2010Q1

REPORT INFORMATION
  Report Type: 
  Country: None (occurrence: None)
  Receive Date: 20100225
  Receipt Date: 20100215
  Transmission Date: 20100710
  Serious: Yes (Life-Threatening, Disabling)
  Sender: FDA-Public Use
  Company Number: GB-ELI_LILLY_AND_COMPANY-GB201002003824

PATIENT
  Age: 44 Year
  Sex: Female

DRUGS (5)
  1. FLUOXETINE [Suspect]
     Indication: DEPRESSION
     Dosage: 20 MG, DAILY (1/D)
     Route: 048
  2. RISPERIDONE [Concomitant]
     Dosage: 1 MG, 3/D
     Route: 065
  3. DICLOFENAC [Concomitant]
     Indication: PAIN IN EXTREMITY
     Dosage: 75 MG, 2/D
     Route: 048
  4. PROCHLORPERAZINE [Concomitant]
     Dosage: 3 MG, 2/D
     Route: 002
  5. TEMAZEPAM [Concomitant]
     Dosage: 10 MG, DAILY (1/D)
     Route: 048

REACTIONS (1)
  - PAIN IN EXTREMITY [None]
